FAERS Safety Report 11254686 (Version 1)
Quarter: 2015Q3

REPORT INFORMATION
  Report Type: Spontaneous
  Country: US (occurrence: None)
  Receive Date: 20150708
  Receipt Date: 20150708
  Transmission Date: 20151125
  Serious: Yes (Hospitalization, Disabling, Other)
  Sender: FDA-Public Use
  Company Number: None

PATIENT
  Age: 50 Year
  Sex: Female
  Weight: 81.65 kg

DRUGS (9)
  1. LEVOTHROXINE SODIUM [Concomitant]
     Active Substance: LEVOTHYROXINE SODIUM
  2. NEURONTIN [Concomitant]
     Active Substance: GABAPENTIN
  3. TRAMADOL HCL [Concomitant]
     Active Substance: TRAMADOL HYDROCHLORIDE
  4. ESTRATEST HS [Concomitant]
     Active Substance: ESTROGENS, ESTERIFIED\METHYLTESTOSTERONE
  5. PROGESTERONE. [Concomitant]
     Active Substance: PROGESTERONE
  6. VITAMIN D [Concomitant]
     Active Substance: CHOLECALCIFEROL
  7. OXYCODONE [Concomitant]
     Active Substance: OXYCODONE
  8. MULTIVITAMIN [Concomitant]
     Active Substance: VITAMINS
  9. LEVAQUIN [Suspect]
     Active Substance: LEVOFLOXACIN
     Indication: SINUSITIS
     Dosage: 2 SINGLE DOSE 2/4/15 AND 5/22/15?500MG SINGLE PILL
     Route: 048
     Dates: start: 20150204

REACTIONS (14)
  - Muscular weakness [None]
  - Dizziness [None]
  - Vestibular disorder [None]
  - Visual impairment [None]
  - Pain in extremity [None]
  - Neuropathy peripheral [None]
  - Drug ineffective [None]
  - Paraesthesia [None]
  - Joint crepitation [None]
  - Feeling abnormal [None]
  - Hypoaesthesia [None]
  - Nerve injury [None]
  - Arthralgia [None]
  - Vertigo [None]

NARRATIVE: CASE EVENT DATE: 20150204
